FAERS Safety Report 6528027-4 (Version None)
Quarter: 2010Q1

REPORT INFORMATION
  Report Type: 
  Country: None (occurrence: None)
  Receive Date: 20100106
  Receipt Date: 20091223
  Transmission Date: 20100710
  Serious: Yes (Life-Threatening, Hospitalization)
  Sender: FDA-Public Use
  Company Number: ES-BRISTOL-MYERS SQUIBB COMPANY-14914667

PATIENT
  Age: 52 Year
  Sex: Male
  Weight: 73 kg

DRUGS (12)
  1. STAVUDINE [Suspect]
     Indication: HIV INFECTION
     Route: 048
     Dates: start: 20050727
  2. MARAVIROC [Suspect]
     Indication: HIV INFECTION
     Route: 048
     Dates: start: 20050727, end: 20070828
  3. DARUNAVIR [Suspect]
     Indication: HIV INFECTION
     Route: 048
     Dates: start: 20070828
  4. RITONAVIR [Suspect]
     Indication: HIV INFECTION
     Route: 048
     Dates: start: 20050727
  5. RALTEGRAVIR [Suspect]
     Indication: HIV INFECTION
     Route: 048
     Dates: start: 20070828
  6. ETRAVIRINE [Suspect]
     Indication: HIV INFECTION
     Route: 048
     Dates: start: 20070828
  7. TENOFOVIR [Suspect]
     Indication: HIV INFECTION
     Route: 048
     Dates: start: 20010701
  8. CLOPIDOGREL BISULFATE [Concomitant]
     Dates: start: 20060511
  9. ACETYLSALICYLIC ACID [Concomitant]
     Dates: start: 20060511
  10. ATORVASTATIN CALCIUM [Concomitant]
     Dates: start: 20060511
  11. ATENOLOL [Concomitant]
     Dates: start: 20060511
  12. EZETIMIBE [Concomitant]
     Dates: start: 20080212

REACTIONS (2)
  - ANGINA UNSTABLE [None]
  - MYOCARDIAL ISCHAEMIA [None]
